FAERS Safety Report 5726170-0 (Version None)
Quarter: 2008Q2

REPORT INFORMATION
  Report Type: 
  Country: None (occurrence: None)
  Receive Date: 20080502
  Receipt Date: 20080428
  Transmission Date: 20081010
  Serious: Yes (Hospitalization)
  Sender: FDA-Public Use
  Company Number: US-BRISTOL-MYERS SQUIBB COMPANY-14169577

PATIENT
  Age: 59 Year
  Sex: Female
  Weight: 53 kg

DRUGS (2)
  1. ERBITUX [Suspect]
     Indication: SQUAMOUS CELL CARCINOMA OF THE CERVIX
     Dosage: START DATE OF 1ST COURSE:21FEB08 INITIAL DOSE(D1):400MG/M SUP(2) SUSEQUENT DOSES:250MG/M SUP(2)
     Route: 042
     Dates: start: 20080320, end: 20080320
  2. CISPLATIN [Suspect]
     Indication: SQUAMOUS CELL CARCINOMA OF THE CERVIX
     Dosage: START DATE OF 1ST COURSE:21-FEB-2008  DAY 1 AND DAY 8: 30MG/M SUP(2)
     Dates: start: 20080320, end: 20080320

REACTIONS (7)
  - BLOOD CREATININE INCREASED [None]
  - DEHYDRATION [None]
  - HAEMOGLOBIN DECREASED [None]
  - RENAL FAILURE [None]
  - THROMBOSIS [None]
  - URETERIC OBSTRUCTION [None]
  - URINARY TRACT INFECTION [None]
